FAERS Safety Report 5680330-6 (Version None)
Quarter: 2008Q1

REPORT INFORMATION
  Report Type: 
  Country: None (occurrence: None)
  Receive Date: 20080326
  Receipt Date: 20080313
  Transmission Date: 20080703
  Serious: Yes (Other)
  Sender: FDA-Public Use
  Company Number: US-AMGEN-QUU266885

PATIENT
  Sex: Female
  Weight: 69.5 kg

DRUGS (10)
  1. ENBREL [Suspect]
     Indication: RHEUMATOID ARTHRITIS
     Route: 058
     Dates: start: 20050301, end: 20080208
  2. PROCRIT [Suspect]
  3. LEVOXYL [Concomitant]
  4. PREDNISONE TAB [Concomitant]
  5. METHOTREXATE [Concomitant]
     Dates: start: 20050101, end: 20070201
  6. HYDROXYCHLOROQUINE [Concomitant]
  7. FOLIC ACID [Concomitant]
     Dates: start: 20060201, end: 20070201
  8. LEVOTHYROXINE SODIUM [Concomitant]
  9. RITALIN [Concomitant]
  10. ISONIAZID [Concomitant]
     Dates: start: 20050101, end: 20051001

REACTIONS (16)
  - ASPARTATE AMINOTRANSFERASE INCREASED [None]
  - BLOOD THYROID STIMULATING HORMONE DECREASED [None]
  - HAEMOGLOBIN DECREASED [None]
  - LEUKOCYTOSIS [None]
  - LEUKOPENIA [None]
  - LUNG NEOPLASM [None]
  - MYELODYSPLASTIC SYNDROME [None]
  - MYELOPROLIFERATIVE DISORDER [None]
  - NIGHT SWEATS [None]
  - POIKILOCYTOSIS [None]
  - POLYCHROMASIA [None]
  - PYREXIA [None]
  - THROMBOCYTOPENIA [None]
  - TOOTH FRACTURE [None]
  - TRANSFUSION REACTION [None]
  - WHITE BLOOD CELL DISORDER [None]
